FAERS Safety Report 4690066-6 (Version None)
Quarter: 2005Q2

REPORT INFORMATION
  Report Type: 
  Country: None (occurrence: None)
  Receive Date: 20050614
  Receipt Date: 20050527
  Transmission Date: 20051028
  Serious: Yes (Death, Hospitalization)
  Sender: FDA-Public Use
  Company Number: 2005-0008372

PATIENT
  Age: 48 Year
  Sex: Male

DRUGS (3)
  1. VIREAD [Suspect]
     Indication: HIV INFECTION
     Dosage: 300 MG, 1 IN 1 D, ORAL
     Route: 048
     Dates: start: 20030201, end: 20050201
  2. VIDEX [Concomitant]
  3. ZERIT [Concomitant]

REACTIONS (17)
  - ASCITES [None]
  - ASTERIXIS [None]
  - CD4 LYMPHOCYTES DECREASED [None]
  - COAGULOPATHY [None]
  - CYTOLYTIC HEPATITIS [None]
  - GENERAL PHYSICAL HEALTH DETERIORATION [None]
  - HEPATIC FAILURE [None]
  - HEPATITIS ACUTE [None]
  - HEPATITIS B VIRUS [None]
  - HEPATOTOXICITY [None]
  - HYPOGLYCAEMIA [None]
  - INFLUENZA LIKE ILLNESS [None]
  - LOSS OF CONSCIOUSNESS [None]
  - OEDEMA PERIPHERAL [None]
  - PYREXIA [None]
  - RESUSCITATION [None]
  - VOMITING [None]
